FAERS Safety Report 4853722-2 (Version None)
Quarter: 2005Q4

REPORT INFORMATION
  Report Type: 
  Country: None (occurrence: None)
  Receive Date: 20051212
  Receipt Date: 20051117
  Transmission Date: 20060501
  Serious: Yes (Hospitalization, Disabling)
  Sender: FDA-Public Use
  Company Number: 385239

PATIENT
  Age: 20 Year
  Sex: Female

DRUGS (2)
  1. ACCUTANE [Suspect]
     Indication: ACNE
     Dosage: 40 MG DAILY ORAL
     Route: 048
     Dates: start: 19980615, end: 19981015
  2. BIRTH CONTROL PILLS NOS (ORAL CONTRACEPTIVE NOS) [Concomitant]

REACTIONS (69)
  - ACNE [None]
  - ADHESION [None]
  - ALANINE AMINOTRANSFERASE INCREASED [None]
  - ANAL ABSCESS [None]
  - ANAL FISTULA [None]
  - ANAL INFECTION [None]
  - ANXIETY [None]
  - ARTHRALGIA [None]
  - BACILLUS INFECTION [None]
  - BILIARY TRACT DISORDER [None]
  - BLOOD ALBUMIN DECREASED [None]
  - BLOOD ALKALINE PHOSPHATASE INCREASED [None]
  - BREAST MASS [None]
  - CAESAREAN SECTION [None]
  - CANDIDIASIS [None]
  - CERVIX CARCINOMA STAGE 0 [None]
  - CHILLS [None]
  - COLITIS [None]
  - COLITIS ULCERATIVE [None]
  - COMPLICATIONS OF MATERNAL EXPOSURE TO THERAPEUTIC DRUGS [None]
  - CONJUNCTIVITIS [None]
  - CROHN'S DISEASE [None]
  - DEPRESSION [None]
  - DERMAL CYST [None]
  - DYSPEPSIA [None]
  - ENDOMETRIAL ATROPHY [None]
  - ENTEROCOCCAL INFECTION [None]
  - ENTEROCOLITIS INFECTIOUS [None]
  - GASTROINTESTINAL DISORDER [None]
  - GASTROOESOPHAGEAL REFLUX DISEASE [None]
  - HAEMORRHOIDS [None]
  - HEADACHE [None]
  - HEPATIC STEATOSIS [None]
  - HYDRONEPHROSIS [None]
  - HYPERHIDROSIS [None]
  - HYPERSENSITIVITY [None]
  - IMPAIRED HEALING [None]
  - INFECTED CYST [None]
  - INFLAMMATORY BOWEL DISEASE [None]
  - INTESTINAL HAEMORRHAGE [None]
  - IRON DEFICIENCY ANAEMIA [None]
  - LIPASE INCREASED [None]
  - MULTI-ORGAN DISORDER [None]
  - OEDEMA MUCOSAL [None]
  - PAIN [None]
  - PELVIC INFECTION [None]
  - PEPTIC ULCER [None]
  - PERIANAL ABSCESS [None]
  - PROCTALGIA [None]
  - PROCTITIS [None]
  - PROTEIN TOTAL DECREASED [None]
  - PYELONEPHRITIS [None]
  - RECTAL HAEMORRHAGE [None]
  - RENAL CYST [None]
  - SEROMA [None]
  - SERUM SICKNESS [None]
  - SLEEP DISORDER [None]
  - SMALL INTESTINAL OBSTRUCTION [None]
  - STAPHYLOCOCCAL INFECTION [None]
  - STRESS [None]
  - SUICIDAL IDEATION [None]
  - SYNCOPE [None]
  - TENSION HEADACHE [None]
  - THERAPY NON-RESPONDER [None]
  - UNEMPLOYMENT [None]
  - UNINTENDED PREGNANCY [None]
  - URINARY TRACT INFECTION [None]
  - VAGINAL HAEMORRHAGE [None]
  - WOUND INFECTION [None]
